FAERS Safety Report 17697065 (Version 1)
Quarter: 2020Q2

REPORT INFORMATION
  Report Type: Spontaneous
  Country: US (occurrence: US)
  Receive Date: 20200423
  Receipt Date: 20200423
  Transmission Date: 20200714
  Serious: No
  Sender: FDA-Public Use
  Company Number: US-CADILA HEALTHCARE LIMITED-US-ZYDUS-039704

PATIENT
  Sex: Female

DRUGS (1)
  1. TRAMADOL. [Suspect]
     Active Substance: TRAMADOL
     Indication: DYSMENORRHOEA
     Dosage: FREQUENCY :UNKNOWN
     Route: 065
     Dates: end: 2019

REACTIONS (2)
  - Therapeutic response unexpected [Unknown]
  - Adverse event [Unknown]
